FAERS Safety Report 6645986-X (Version None)
Quarter: 2010Q1

REPORT INFORMATION
  Report Type: 
  Country: None (occurrence: None)
  Receive Date: 20100323
  Receipt Date: 20100315
  Transmission Date: 20100710
  Serious: Yes (Other)
  Sender: FDA-Public Use
  Company Number: US-ASTRAZENECA-2010SE11085

PATIENT
  Sex: Female

DRUGS (3)
  1. SYMBICORT [Suspect]
     Route: 055
  2. CHANTIX [Suspect]
  3. ADVAIR DISKUS 100/50 [Suspect]

REACTIONS (12)
  - ABDOMINAL PAIN [None]
  - ANXIETY [None]
  - BACK PAIN [None]
  - DYSPHAGIA [None]
  - FLATULENCE [None]
  - HYPERTENSION [None]
  - NAUSEA [None]
  - NERVOUSNESS [None]
  - PHARYNGEAL OEDEMA [None]
  - STRESS [None]
  - TREMOR [None]
  - URTICARIA [None]
